FAERS Safety Report 5608804-4 (Version None)
Quarter: 2008Q1

REPORT INFORMATION
  Report Type: 
  Country: None (occurrence: None)
  Receive Date: 20080131
  Receipt Date: 20080130
  Transmission Date: 20080703
  Serious: Yes (Death, Life-Threatening, Hospitalization, Disabling, Other)
  Sender: FDA-Public Use
  Company Number: JP-BRISTOL-MYERS SQUIBB COMPANY-13992896

PATIENT
  Age: 75 Year
  Sex: Male
  Weight: 56 kg

DRUGS (11)
  1. BRIPLATIN [Suspect]
     Indication: PLEURAL MESOTHELIOMA MALIGNANT
     Dosage: 85 MG/M2 1/1 DAY. 02-MAY-2007 TO 02-MAY-2007.ON 25-MAY-07,DRUG DISCONTINUED.
     Route: 041
     Dates: start: 20070403, end: 20070403
  2. ALIMTA [Suspect]
     Indication: PLEURAL MESOTHELIOMA MALIGNANT
     Dosage: 730 MG/M2 1/1 DAY  FROM 02-MAY-2007 TO 02-MAY-2007.ON 25-MAY-07,DRUG DISCONTINUED.
     Route: 042
     Dates: start: 20070403, end: 20070403
  3. PANVITAN [Concomitant]
     Route: 048
     Dates: start: 20070326, end: 20070531
  4. MASBLON H [Concomitant]
     Route: 030
     Dates: start: 20070326, end: 20070524
  5. KYTRIL [Concomitant]
     Dosage: ALSO ON 02-MAY-2007 TO 02-MAY-2007.
     Route: 041
     Dates: start: 20070403, end: 20070502
  6. DECADRON [Concomitant]
     Dosage: 02-MAY-2007 TO 02-MAY-2007.
     Route: 041
     Dates: start: 20070403, end: 20070502
  7. ZANTAC [Concomitant]
     Route: 041
     Dates: start: 20070403, end: 20070404
  8. FOSMICIN-S [Concomitant]
     Route: 041
     Dates: start: 20070403, end: 20070404
  9. PRIMPERAN INJ [Concomitant]
     Route: 041
     Dates: start: 20070404, end: 20070407
  10. NORVASC [Concomitant]
     Route: 048
  11. FRANDOL [Concomitant]
     Route: 061

REACTIONS (11)
  - ANAEMIA [None]
  - ASPARTATE AMINOTRANSFERASE INCREASED [None]
  - DIARRHOEA [None]
  - LYMPHOCYTE COUNT DECREASED [None]
  - MALIGNANT NEOPLASM PROGRESSION [None]
  - NAUSEA [None]
  - NEUTROPHIL COUNT DECREASED [None]
  - PLATELET COUNT DECREASED [None]
  - RENAL FUNCTION TEST ABNORMAL [None]
  - SHOCK [None]
  - WHITE BLOOD CELL COUNT DECREASED [None]
